FAERS Safety Report 5455949-8 (Version None)
Quarter: 2007Q3

REPORT INFORMATION
  Report Type: 
  Country: None (occurrence: None)
  Receive Date: 20070914
  Receipt Date: 20070905
  Transmission Date: 20080115
  Serious: No
  Sender: FDA-Public Use
  Company Number: 237032K07USA

PATIENT
  Age: 53 Year
  Sex: Female

DRUGS (1)
  1. REBIF [Suspect]
     Indication: MULTIPLE SCLEROSIS
     Dosage: 44 MCG, 3 IN 1 WEEKS, SUBCUTANEOUS
     Route: 058
     Dates: start: 20070627, end: 20070813

REACTIONS (5)
  - ASTHENIA [None]
  - CONVULSION [None]
  - HEPATIC ENZYME INCREASED [None]
  - LHERMITTE'S SIGN [None]
  - TREMOR [None]
